FAERS Safety Report 11465958 (Version 1)
Quarter: 2015Q3

REPORT INFORMATION
  Report Type: Spontaneous
  Country: US (occurrence: US)
  Receive Date: 20150907
  Receipt Date: 20150907
  Transmission Date: 20151125
  Serious: No
  Sender: FDA-Public Use
  Company Number: US-BAYER-2015-412770

PATIENT
  Age: 22 Year
  Sex: Female
  Weight: 77.98 kg

DRUGS (1)
  1. ALEVE PM [Suspect]
     Active Substance: DIPHENHYDRAMINE HYDROCHLORIDE\NAPROXEN SODIUM
     Indication: DEPRESSION
     Dosage: 10 UNK, ONCE
     Route: 048
     Dates: start: 20150828

REACTIONS (3)
  - Product use issue [None]
  - Intentional product misuse [None]
  - Vomiting [None]

NARRATIVE: CASE EVENT DATE: 20150828
